FAERS Safety Report 22890259 (Version 3)
Quarter: 2023Q4

REPORT INFORMATION
  Report Type: Report from Study
  Country: CH (occurrence: CH)
  Receive Date: 20230831
  Receipt Date: 20231018
  Transmission Date: 20240110
  Serious: Yes (Hospitalization)
  Sender: FDA-Public Use
  Company Number: CH-ABBVIE-5174512

PATIENT
  Age: 53 Year
  Sex: Male
  Weight: 79 kg

DRUGS (6)
  1. RISANKIZUMAB [Suspect]
     Active Substance: RISANKIZUMAB
     Indication: Colitis ulcerative
     Dosage: TIME INTERVAL: TOTAL
     Route: 042
     Dates: start: 20220901, end: 20220901
  2. URSODIOL [Concomitant]
     Active Substance: URSODIOL
     Indication: Cholangitis
     Route: 048
     Dates: start: 20220407
  3. MESALAMINE [Concomitant]
     Active Substance: MESALAMINE
     Indication: Colitis ulcerative
     Route: 048
     Dates: start: 20220330
  4. PANTOPRAZOLE SODIUM [Concomitant]
     Active Substance: PANTOPRAZOLE SODIUM
     Indication: Barrett^s oesophagus
     Route: 048
     Dates: start: 2008
  5. TORSEMIDE [Concomitant]
     Active Substance: TORSEMIDE
     Indication: Hepatic failure
     Route: 048
     Dates: start: 20230214
  6. RISANKIZUMAB [Suspect]
     Active Substance: RISANKIZUMAB
     Indication: Colitis ulcerative
     Route: 058
     Dates: start: 20221027, end: 20230403

REACTIONS (1)
  - Hepatic failure [Recovered/Resolved]

NARRATIVE: CASE EVENT DATE: 20230213
